FAERS Safety Report 14867765 (Version 1)
Quarter: 2018Q2

REPORT INFORMATION
  Report Type: Spontaneous
  Country: JP (occurrence: JP)
  Receive Date: 20180509
  Receipt Date: 20180509
  Transmission Date: 20180711
  Serious: Yes (Other)
  Sender: FDA-Public Use
  Company Number: PHHY2018JP074903

PATIENT
  Age: 37 Year
  Sex: Male

DRUGS (2)
  1. IMATINIB [Suspect]
     Active Substance: IMATINIB
     Indication: MYELOFIBROSIS
     Dosage: 400 MG, QD
     Route: 065
     Dates: start: 200511, end: 200602
  2. IMATINIB [Suspect]
     Active Substance: IMATINIB
     Indication: ACUTE MYELOID LEUKAEMIA

REACTIONS (6)
  - Anaemia [Unknown]
  - Acute myeloid leukaemia recurrent [Unknown]
  - Pyrexia [Unknown]
  - Therapeutic response decreased [Unknown]
  - Leukopenia [Unknown]
  - Loss of consciousness [Unknown]

NARRATIVE: CASE EVENT DATE: 200602
